FAERS Safety Report 24545379 (Version 1)
Quarter: 2024Q4

REPORT INFORMATION
  Report Type: Spontaneous
  Country: IN (occurrence: IN)
  Receive Date: 20241024
  Receipt Date: 20241024
  Transmission Date: 20250115
  Serious: Yes (Other)
  Sender: NOVARTIS
  Company Number: IN-SANDOZ-SDZ2024IN088891

PATIENT
  Sex: Male

DRUGS (3)
  1. TACROLIMUS [Suspect]
     Active Substance: TACROLIMUS
     Indication: Renal transplant
     Dosage: 3.5 MG (1.5MG (M), 2.0MG (N))
     Route: 048
  2. TACROLIMUS [Suspect]
     Active Substance: TACROLIMUS
     Dosage: 3.5 MG (1.5MG (M), 2.0MG (N))
     Route: 048
  3. MYFORTIC [Suspect]
     Active Substance: MYCOPHENOLATE SODIUM
     Indication: Renal transplant
     Dosage: 720 MG, QD (360 MG, BID)
     Route: 048

REACTIONS (8)
  - Cataract [Unknown]
  - Pneumonia klebsiella [Unknown]
  - New onset diabetes after transplantation [Unknown]
  - Abdominal discomfort [Unknown]
  - Herpes virus infection [Unknown]
  - Vision blurred [Unknown]
  - Abdominal pain lower [Unknown]
  - Rash [Unknown]
